FAERS Safety Report 7576161-2 (Version None)
Quarter: 2011Q2

REPORT INFORMATION
  Report Type: 
  Country: None (occurrence: None)
  Receive Date: 20110628
  Receipt Date: 20110617
  Transmission Date: 20111010
  Serious: Yes (Death, Life-Threatening, Other)
  Sender: FDA-Public Use
  Company Number: JP-CELGENEUS-087-50794-11060754

PATIENT
  Sex: Male

DRUGS (44)
  1. LANSOPRAZOLE [Concomitant]
     Dosage: 30 MILLIGRAM
     Route: 048
     Dates: start: 20110316, end: 20110621
  2. RINDERON-V [Concomitant]
     Route: 061
  3. CHLOR-TRIMETON [Concomitant]
     Dosage: 10 MILLIGRAM
     Route: 051
  4. WHITE PETROLATUM [Concomitant]
     Route: 061
  5. HUMULIN R [Concomitant]
     Dosage: 18 IU (INTERNATIONAL UNIT)
     Route: 051
  6. MAXIPIME [Concomitant]
     Dosage: 2 GRAM
     Route: 051
  7. SULFAMETHOXAZOLE [Concomitant]
     Dosage: 1 DOSAGE FORMS
     Route: 048
     Dates: start: 20110312, end: 20110621
  8. JU-KAMA [Concomitant]
     Route: 048
  9. ITRACONAZOLE [Concomitant]
     Dosage: 20 MILLILITER
     Route: 048
  10. VFEND [Concomitant]
     Route: 048
  11. DOMININ [Concomitant]
     Dosage: 100 MILLIGRAM
     Route: 051
  12. AMBISOME [Concomitant]
     Route: 051
  13. FULCALIQ [Concomitant]
     Dosage: 1003 MILLILITER
     Route: 051
  14. AZUNOL [Concomitant]
     Dosage: 4 PERCENT
     Route: 048
  15. ACETAMINOPHEN [Concomitant]
     Dosage: 400 MILLIGRAM
     Route: 048
  16. DORIPENEM MONOHYDRATE [Concomitant]
     Dosage: 1 GRAM
     Route: 051
  17. LORAZEPAM [Concomitant]
     Dosage: .5 MILLIGRAM
     Route: 048
  18. VANCOMYCIN [Concomitant]
     Dosage: 1 GRAM
     Route: 051
  19. ELEMENMIC [Concomitant]
     Dosage: 2 MILLILITER
     Route: 051
  20. MAGNESIUM OXIDE [Concomitant]
     Dosage: 1.5 GRAM
     Route: 048
     Dates: start: 20110312, end: 20110511
  21. PRIMPERAN TAB [Concomitant]
     Dosage: 5 MILLIGRAM
     Route: 048
  22. PURSENNID [Concomitant]
     Dosage: 24 MILLIGRAM
     Route: 048
  23. ACUATIM [Concomitant]
     Route: 061
  24. VIDAZA [Suspect]
     Dosage: 25 MILLIGRAM/SQ. METER
     Route: 058
     Dates: start: 20110509, end: 20110515
  25. KYTRIL [Concomitant]
     Dosage: 1 MILLIGRAM
     Route: 048
     Dates: start: 20110317, end: 20110323
  26. DALACIN-S [Concomitant]
     Dosage: 600 MILLIGRAM
     Route: 051
  27. CIPROFLOXACIN HCL [Concomitant]
     Dosage: 600 MILLIGRAM
     Route: 051
  28. MYOCOR [Concomitant]
     Route: 060
  29. VIDAZA [Suspect]
     Indication: MYELODYSPLASTIC SYNDROME
     Dosage: 75 MILLIGRAM/SQ. METER
     Route: 058
     Dates: start: 20110317, end: 20110322
  30. LOXONIN [Concomitant]
     Dosage: 60 MILLIGRAM
     Route: 048
  31. HEPAFLUSH [Concomitant]
     Dosage: 10 MILLIGRAM
     Route: 051
  32. AMOXICILLIN [Concomitant]
     Dosage: 750 MILLIGRAM
     Route: 048
  33. VITAMEDIN [Concomitant]
     Route: 051
  34. LEVOFLOXACIN [Concomitant]
     Route: 048
  35. LOXONIN [Concomitant]
     Route: 061
  36. HYDROCORTONE [Concomitant]
     Dosage: 100 MILLIGRAM
     Route: 051
  37. FUNGUARD [Concomitant]
     Dosage: 150 MILLIGRAM
     Route: 051
  38. DROPERIDOL [Concomitant]
     Dosage: 2.5 MILLIGRAM
     Route: 051
  39. MORPHINE HCL ELIXIR [Concomitant]
     Dosage: 1 MILLILITER
     Route: 051
  40. VALTREX [Concomitant]
     Dosage: 500 MILLIGRAM
     Route: 048
     Dates: start: 20110312, end: 20110621
  41. FK [Concomitant]
     Dosage: 3.9 GRAM
     Route: 048
     Dates: start: 20110312, end: 20110621
  42. ANHIBA [Concomitant]
     Dosage: 400 MILLIGRAM
     Route: 054
  43. LENDORMIN [Concomitant]
     Dosage: .25 MILLIGRAM
     Route: 048
  44. LASIX [Concomitant]
     Dosage: 20 MILLIGRAM
     Route: 051

REACTIONS (8)
  - NAUSEA [None]
  - CELLULITIS [None]
  - RENAL IMPAIRMENT [None]
  - THROMBOCYTOPENIA [None]
  - PYREXIA [None]
  - ANAEMIA [None]
  - NEUTROPENIA [None]
  - PNEUMONIA [None]
